FAERS Safety Report 24171238 (Version 1)
Quarter: 2024Q3

REPORT INFORMATION
  Report Type: Report from Study
  Country: US (occurrence: US)
  Receive Date: 20240805
  Receipt Date: 20240805
  Transmission Date: 20241016
  Serious: No
  Sender: RANBAXY
  Company Number: US-SUN PHARMACEUTICAL INDUSTRIES LTD-2023R1-417964

PATIENT
  Sex: Male

DRUGS (1)
  1. SONIDEGIB [Suspect]
     Active Substance: SONIDEGIB
     Indication: Skin cancer
     Dosage: 200 MILLIGRAM, DAILY
     Route: 048
     Dates: start: 20230724

REACTIONS (4)
  - Product dose omission issue [Unknown]
  - Product dispensing error [Unknown]
  - Diarrhoea [Recovering/Resolving]
  - Product use issue [Unknown]
